FAERS Safety Report 9711329 (Version 1)
Quarter: 2013Q4

REPORT INFORMATION
  Report Type: Spontaneous
  Country: US (occurrence: US)
  Receive Date: 20131126
  Receipt Date: 20131126
  Transmission Date: 20140711
  Serious: No
  Sender: FDA-Public Use
  Company Number: US-BRISTOL-MYERS SQUIBB COMPANY-19438993

PATIENT
  Age: 72 Year
  Sex: Female
  Weight: 74.83 kg

DRUGS (1)
  1. BYETTA PEN DISPOSABLE [Suspect]
     Indication: TYPE 2 DIABETES MELLITUS
     Dosage: NOW TOOK 5MCG PEN.
     Route: 058

REACTIONS (1)
  - Incorrect dose administered [Unknown]
